FAERS Safety Report 8406250-1 (Version None)
Quarter: 2012Q2

REPORT INFORMATION
  Report Type: 
  Country: None (occurrence: None)
  Receive Date: 20120604
  Receipt Date: 20120528
  Transmission Date: 20120825
  Serious: Yes (Other)
  Sender: FDA-Public Use
  Company Number: PHHY2011CA95772

PATIENT
  Sex: Male

DRUGS (4)
  1. PREDNISONE [Concomitant]
     Dosage: 5 MG, BID
     Route: 048
  2. EXJADE [Suspect]
     Dosage: 125 MG, QOD
     Route: 048
     Dates: start: 20120101
  3. PREVACID [Concomitant]
     Indication: GASTROOESOPHAGEAL REFLUX DISEASE
  4. EXJADE [Suspect]
     Indication: CONGENITAL APLASTIC ANAEMIA
     Dosage: 250 MG, QD
     Route: 048
     Dates: start: 20110101

REACTIONS (13)
  - VISUAL ACUITY REDUCED [None]
  - HYPERMETROPIA [None]
  - EAR INFECTION [None]
  - LUNG INFECTION [None]
  - STRABISMUS [None]
  - DENTAL CARIES [None]
  - TOOTH DISORDER [None]
  - FATIGUE [None]
  - PAIN [None]
  - GAZE PALSY [None]
  - HAEMOGLOBIN DECREASED [None]
  - SERUM FERRITIN INCREASED [None]
  - ABDOMINAL PAIN UPPER [None]
